FAERS Safety Report 6600284-5 (Version None)
Quarter: 2010Q1

REPORT INFORMATION
  Report Type: 
  Country: None (occurrence: None)
  Receive Date: 20100224
  Receipt Date: 20100216
  Transmission Date: 20100710
  Serious: Yes (Other)
  Sender: FDA-Public Use
  Company Number: US-PFIZER INC-2010020965

PATIENT
  Sex: Female
  Weight: 86.168 kg

DRUGS (2)
  1. LIPITOR [Suspect]
     Indication: BLOOD CHOLESTEROL INCREASED
     Dosage: 10 MG, 1X/DAY
     Route: 048
     Dates: start: 20090101
  2. LIPITOR [Suspect]
     Dosage: 10 MG, ALTERNATE DAY

REACTIONS (4)
  - DRUG INEFFECTIVE [None]
  - HYPOTHYROIDISM [None]
  - MUSCLE SPASMS [None]
  - WEIGHT INCREASED [None]
